FAERS Safety Report 20536854 (Version 1)
Quarter: 2022Q1

REPORT INFORMATION
  Report Type: Spontaneous
  Country: BE (occurrence: None)
  Receive Date: 20220302
  Receipt Date: 20220302
  Transmission Date: 20220423
  Serious: Yes (Hospitalization)
  Sender: FDA-Public Use
  Company Number: BE-Unichem Pharmaceuticals (USA) Inc-UCM202202-000180

PATIENT
  Age: 16 Year
  Sex: Female

DRUGS (2)
  1. BACLOFEN [Suspect]
     Active Substance: BACLOFEN
     Indication: Toxicity to various agents
     Dosage: UNKNOWN
  2. TRAZODONE [Suspect]
     Active Substance: TRAZODONE HYDROCHLORIDE
     Indication: Toxicity to various agents
     Dosage: UNKNOWN

REACTIONS (5)
  - Respiratory acidosis [Unknown]
  - Toxicity to various agents [Unknown]
  - Hypotension [Unknown]
  - Coma [Unknown]
  - Drug level increased [Recovered/Resolved]
